FAERS Safety Report 15271472 (Version 1)
Quarter: 2018Q3

REPORT INFORMATION
  Report Type: Spontaneous
  Country: US (occurrence: US)
  Receive Date: 20180727
  Receipt Date: 20180727
  Transmission Date: 20181010
  Serious: Yes (Life-Threatening, Hospitalization, Other)
  Sender: FDA-Public Use
  Company Number: None

PATIENT
  Age: 69 Year
  Sex: Female
  Weight: 67 kg

DRUGS (4)
  1. AMLODIPINE 5 MG DAILY [Concomitant]
     Dates: start: 20160902, end: 20180725
  2. IBUPROFEN (OTC) [Concomitant]
     Dates: start: 20180725, end: 20180725
  3. BENAZEPRIL 20 MG (PT NOT USING FOR A FEW MONTHS) [Concomitant]
     Dates: start: 20180725, end: 20180725
  4. TAMSULOSIN [Suspect]
     Active Substance: TAMSULOSIN
     Indication: MEDICAL DEVICE PAIN
     Route: 048
     Dates: start: 20180725, end: 20180725

REACTIONS (3)
  - Angioedema [None]
  - Oropharyngeal pain [None]
  - Type IV hypersensitivity reaction [None]

NARRATIVE: CASE EVENT DATE: 20180725
